FAERS Safety Report 8043071-6 (Version None)
Quarter: 2012Q1

REPORT INFORMATION
  Report Type: 
  Country: None (occurrence: None)
  Receive Date: 20120112
  Receipt Date: 20120105
  Transmission Date: 20120608
  Serious: Yes (Other)
  Sender: FDA-Public Use
  Company Number: US-ABBOTT-12P-163-0889920-00

PATIENT
  Age: 65 Year
  Sex: Male

DRUGS (19)
  1. ACTOS [Concomitant]
     Indication: DIABETES MELLITUS
  2. PENTASA [Concomitant]
     Indication: CROHN'S DISEASE
     Dosage: 4 TABS FOUR TIMES DAILY
  3. DIPHENOXYLATE [Concomitant]
     Indication: CROHN'S DISEASE
     Dosage: 2.5MG AS NEEDED, NO MORE THAN 4 DAILY
  4. DIOVAN [Concomitant]
     Indication: BLOOD PRESSURE
  5. LOVASTATIN [Concomitant]
     Indication: BLOOD CHOLESTEROL INCREASED
  6. CALCIUM 600 + D [Concomitant]
     Indication: PRODUCT USED FOR UNKNOWN INDICATION
     Dosage: DAILY
  7. VITAMIN B-12 [Concomitant]
     Indication: PRODUCT USED FOR UNKNOWN INDICATION
     Dosage: DAILY
     Route: 060
  8. VITAMIN D [Concomitant]
     Indication: CROHN'S DISEASE
     Dosage: DAILY
  9. LEVOTHYROXINE SODIUM [Concomitant]
     Indication: HYPOTHYROIDISM
  10. IRON [Concomitant]
     Indication: PRODUCT USED FOR UNKNOWN INDICATION
     Dosage: DAILY
  11. HUMIRA [Suspect]
     Indication: CROHN'S DISEASE
  12. DEGARELIX [Suspect]
     Indication: PROSTATE CANCER
  13. DYAZIDE [Concomitant]
     Indication: PRODUCT USED FOR UNKNOWN INDICATION
  14. FISH OIL [Concomitant]
     Indication: PRODUCT USED FOR UNKNOWN INDICATION
     Dates: start: 20110601
  15. HYDROCODONE BITARTRATE [Concomitant]
     Indication: CROHN'S DISEASE
  16. GLIPIZIDE [Concomitant]
     Indication: DIABETES MELLITUS
  17. ASPIRIN [Concomitant]
     Indication: PRODUCT USED FOR UNKNOWN INDICATION
     Dosage: LOW DOSE, DAILY
  18. LUPRON DEPOT [Concomitant]
     Indication: PRODUCT USED FOR UNKNOWN INDICATION
  19. HYDROCHLOROTHIAZIDE [Concomitant]
     Indication: HYPERTENSION
     Dates: end: 20110501

REACTIONS (11)
  - DYSPNOEA [None]
  - CARDIAC STRESS TEST ABNORMAL [None]
  - PERIARTHRITIS [None]
  - CREPITATIONS [None]
  - HOT FLUSH [None]
  - DEVICE MALFUNCTION [None]
  - INCORRECT DOSE ADMINISTERED [None]
  - INJECTION SITE MASS [None]
  - HYPOTENSION [None]
  - INJECTION SITE REACTION [None]
  - PROSTATE CANCER [None]
